FAERS Safety Report 11611702 (Version 1)
Quarter: 2015Q4

REPORT INFORMATION
  Report Type: Spontaneous
  Country: US (occurrence: US)
  Receive Date: 20151008
  Receipt Date: 20151008
  Transmission Date: 20160304
  Serious: No
  Sender: FDA-Public Use
  Company Number: US-BRISTOL-MYERS SQUIBB COMPANY-BMS-2015-067397

PATIENT
  Age: 60 Year
  Sex: Male

DRUGS (3)
  1. ABILIFY [Suspect]
     Active Substance: ARIPIPRAZOLE
     Indication: BIPOLAR DISORDER
     Dosage: 15 MG, QD
     Route: 048
     Dates: start: 201406
  2. SEROQUEL [Concomitant]
     Active Substance: QUETIAPINE FUMARATE
     Indication: SLEEP DISORDER
     Dosage: 50 MG, UNK
     Route: 065
  3. LITHIUM. [Concomitant]
     Active Substance: LITHIUM
     Indication: SLEEP DISORDER
     Route: 065

REACTIONS (8)
  - Extrapyramidal disorder [Unknown]
  - Sensory loss [Unknown]
  - Poverty of speech [Recovered/Resolved]
  - Tardive dyskinesia [Unknown]
  - Emotional disorder [Unknown]
  - Muscle twitching [Recovered/Resolved]
  - Grunting [Recovered/Resolved]
  - Flat affect [Recovered/Resolved]
